FAERS Safety Report 5283008-6 (Version None)
Quarter: 2007Q1

REPORT INFORMATION
  Report Type: 
  Country: None (occurrence: None)
  Receive Date: 20070329
  Receipt Date: 20070329
  Transmission Date: 20070707
  Serious: Yes (Hospitalization)
  Sender: FDA-Public Use
  Company Number: None

PATIENT
  Age: 48 Year
  Sex: Female
  Weight: 57.6068 kg

DRUGS (10)
  1. AVASTIN [Suspect]
     Indication: METASTATIC MALIGNANT MELANOMA
     Dosage: 580MG IV DAY 1 AND 15
     Route: 042
     Dates: start: 20070320, end: 20070320
  2. TARCEVA [Suspect]
     Dosage: 150MG PO DAILY X 28 DAY
     Route: 048
     Dates: start: 20070320, end: 20070323
  3. FENTANYL [Concomitant]
  4. MSIR [Concomitant]
  5. LEXAPRO [Concomitant]
  6. PHENERGAN HCL [Concomitant]
  7. ATIVAN [Concomitant]
  8. DECADRON [Concomitant]
  9. BENADRYL [Concomitant]
  10. XANAX [Concomitant]

REACTIONS (7)
  - ABDOMINAL PAIN [None]
  - BACK PAIN [None]
  - DIARRHOEA [None]
  - MUSCULOSKELETAL PAIN [None]
  - NAUSEA [None]
  - NECK PAIN [None]
  - VOMITING [None]
